FAERS Safety Report 18391782 (Version 3)
Quarter: 2020Q4

REPORT INFORMATION
  Report Type: Report from Study
  Country: US (occurrence: US)
  Receive Date: 20201016
  Receipt Date: 20201106
  Transmission Date: 20210114
  Serious: Yes (Death, Hospitalization, Other)
  Sender: FDA-Public Use
  Company Number: US-BRISTOL-MYERS SQUIBB COMPANY-BMS-2020-086003

PATIENT
  Age: 52 Year
  Sex: Male
  Weight: 71.4 kg

DRUGS (1)
  1. NIVOLUMAB [Suspect]
     Active Substance: NIVOLUMAB
     Indication: SQUAMOUS CELL CARCINOMA OF THE TONGUE
     Dosage: 480 MILLIGRAM
     Dates: start: 20200526, end: 20200818

REACTIONS (17)
  - Thrombocytosis [Unknown]
  - Ileus [Unknown]
  - Subcutaneous emphysema [Unknown]
  - Hypercalcaemia [Unknown]
  - Malnutrition [Unknown]
  - Urinary retention [Unknown]
  - Death [Fatal]
  - Hyperthyroidism [Unknown]
  - Hypophosphataemia [Unknown]
  - Metabolic encephalopathy [Unknown]
  - Staphylococcal bacteraemia [Unknown]
  - Hyponatraemia [Unknown]
  - Hypothyroidism [Unknown]
  - Pneumothorax [Unknown]
  - Acute respiratory failure [Unknown]
  - Pneumonia staphylococcal [Unknown]
  - Hypokalaemia [Unknown]

NARRATIVE: CASE EVENT DATE: 20201009
